FAERS Safety Report 10221950 (Version 2)
Quarter: 2014Q2

REPORT INFORMATION
  Report Type: Report from Study
  Country: US (occurrence: US)
  Receive Date: 20140606
  Receipt Date: 20140606
  Transmission Date: 20141212
  Serious: Yes (Hospitalization)
  Sender: FDA-Public Use
  Company Number: US-BIOMARINAP-US-2013-101366

PATIENT
  Age: 17 Year
  Sex: Female
  Weight: 26.9 kg

DRUGS (1)
  1. NAGLAZYME [Suspect]
     Indication: MUCOPOLYSACCHARIDOSIS VI
     Dosage: 25 MG, QW
     Route: 041
     Dates: start: 20071212

REACTIONS (2)
  - Respiratory disorder [Recovered/Resolved]
  - Pyrexia [Recovered/Resolved]
